FAERS Safety Report 8650322 (Version 2)
Quarter: 2012Q4

REPORT INFORMATION
  Report Type: Report from Study
  Country: JP (occurrence: JP)
  Receive Date: 20120705
  Receipt Date: 20121228
  Transmission Date: 20130627
  Serious: Yes (Other)
  Sender: FDA-Public Use
  Company Number: JP-VERTEX PHARMACEUTICALS INC.-AE-2012-009610

PATIENT
  Age: 62 Year
  Sex: Male

DRUGS (14)
  1. VX-950 (TELAPREVIR) [Suspect]
     Indication: CHRONIC HEPATITIS C
     Dosage: 2250 mg, qd
     Route: 048
     Dates: start: 20120316, end: 20120501
  2. VX-950 (TELAPREVIR) [Suspect]
     Dosage: 1500 mg, qd
     Route: 048
     Dates: start: 20120502, end: 20120513
  3. VX-950 (TELAPREVIR) [Suspect]
     Dosage: 500 mg, qd
     Route: 048
     Dates: start: 20120514, end: 20120514
  4. REBETOL [Suspect]
     Indication: CHRONIC HEPATITIS C
     Dosage: 800 mg, qd
     Route: 048
     Dates: start: 20120316, end: 20120405
  5. REBETOL [Suspect]
     Dosage: 600 mg, qd
     Route: 048
     Dates: start: 20120406, end: 20120510
  6. REBETOL [Suspect]
     Dosage: 400 mg, qd
     Route: 048
     Dates: start: 20120511
  7. PEGINTRON                          /01543001/ [Suspect]
     Indication: CHRONIC HEPATITIS C
     Dosage: 1.62 ?g/kg, qw
     Route: 058
     Dates: start: 20120316, end: 20120330
  8. PEGINTRON                          /01543001/ [Suspect]
     Dosage: 1.38 ?g/kg, UNK
     Route: 058
     Dates: start: 20120406
  9. MERISLON [Concomitant]
     Dosage: 18 mg, qd
     Route: 048
  10. ZYLORIC [Concomitant]
     Dosage: 200 mg, qd
     Route: 048
     Dates: start: 20120309, end: 20120318
  11. ZYLORIC [Concomitant]
     Dosage: 100 mg, qd
     Route: 048
     Dates: start: 20120601
  12. LOXONIN [Concomitant]
     Dosage: 60 mg, prn
     Route: 048
     Dates: start: 20120315, end: 20120331
  13. MUCOSTA [Concomitant]
     Dosage: 100 mg, prn
     Route: 048
     Dates: start: 20120315, end: 20120331
  14. MUCOSTA [Concomitant]
     Dosage: 300 mg, qd
     Route: 048
     Dates: start: 20120518

REACTIONS (2)
  - Rash [Recovered/Resolved]
  - Off label use [Unknown]
